FAERS Safety Report 4262234-9 (Version None)
Quarter: 2004Q1

REPORT INFORMATION
  Report Type: 
  Country: None (occurrence: None)
  Receive Date: 20040102
  Receipt Date: 20031217
  Transmission Date: 20041129
  Serious: Yes (Other)
  Sender: FDA-Public Use
  Company Number: PHBS2003JP14190

PATIENT
  Sex: Male

DRUGS (4)
  1. AREDIA [Suspect]
     Indication: METASTASES TO BONE
     Dosage: 30 MG
     Dates: start: 20031216, end: 20031216
  2. LEUPROLIDE ACETATE [Concomitant]
     Dosage: 3.75 MG/D
     Route: 058
  3. ETHINYL ESTRADIOL TAB [Concomitant]
     Route: 048
  4. MOBIC [Concomitant]
     Route: 048
     Dates: start: 20031216

REACTIONS (1)
  - CONVULSION [None]
